FAERS Safety Report 12727284 (Version 1)
Quarter: 2016Q3

REPORT INFORMATION
  Report Type: Spontaneous
  Country: FR (occurrence: FR)
  Receive Date: 20160909
  Receipt Date: 20160909
  Transmission Date: 20161109
  Serious: Yes (Other)
  Sender: FDA-Public Use
  Company Number: FR-BAUSCH-BL-2016-021590

PATIENT
  Age: 85 Year
  Sex: Male

DRUGS (11)
  1. MONO-TILDIEM LP [Suspect]
     Active Substance: DILTIAZEM
     Route: 048
     Dates: start: 1987
  2. PERMIXON [Concomitant]
     Active Substance: SAW PALMETTO
     Indication: PRODUCT USED FOR UNKNOWN INDICATION
  3. DIPROSONE [Concomitant]
     Active Substance: BETAMETHASONE DIPROPIONATE
     Indication: PRODUCT USED FOR UNKNOWN INDICATION
  4. MONO-TILDIEM LP [Suspect]
     Active Substance: DILTIAZEM
     Indication: PRODUCT USED FOR UNKNOWN INDICATION
     Route: 048
     Dates: start: 1987
  5. STALEVO [Concomitant]
     Active Substance: CARBIDOPA\ENTACAPONE\LEVODOPA
     Indication: PRODUCT USED FOR UNKNOWN INDICATION
  6. KARDEGIC [Concomitant]
     Active Substance: ASPIRIN LYSINE
     Indication: PRODUCT USED FOR UNKNOWN INDICATION
  7. AMOXICILLINE [Concomitant]
     Active Substance: AMOXICILLIN
     Indication: PRODUCT USED FOR UNKNOWN INDICATION
  8. MELAXOSE [Concomitant]
     Active Substance: LACTULOSE\PARAFFIN
     Indication: PRODUCT USED FOR UNKNOWN INDICATION
  9. DEDROGYL [Concomitant]
     Active Substance: CALCIFEDIOL
     Indication: PRODUCT USED FOR UNKNOWN INDICATION
  10. MODOPAR LP [Concomitant]
     Active Substance: BENSERAZIDE HYDROCHLORIDE\LEVODOPA
     Indication: PRODUCT USED FOR UNKNOWN INDICATION
  11. BI-TILDIEM [Suspect]
     Active Substance: DILTIAZEM
     Indication: PRODUCT USED FOR UNKNOWN INDICATION
     Route: 048
     Dates: start: 2016

REACTIONS (11)
  - Erysipelas [Unknown]
  - Gynaecomastia [Unknown]
  - Parkinson^s disease [Unknown]
  - Affective disorder [Unknown]
  - Hypotension [Unknown]
  - Gastrointestinal disorder [Recovering/Resolving]
  - Dizziness [Unknown]
  - Constipation [Unknown]
  - Psoriasis [Unknown]
  - Fatigue [Unknown]
  - Malaise [Unknown]

NARRATIVE: CASE EVENT DATE: 1987
